FAERS Safety Report 9444675 (Version 2)
Quarter: 2013Q4

REPORT INFORMATION
  Report Type: Spontaneous
  Country: US (occurrence: US)
  Receive Date: 20130807
  Receipt Date: 20131029
  Transmission Date: 20140711
  Serious: Yes (Death, Other)
  Sender: FDA-Public Use
  Company Number: US-BAYER-2013-095324

PATIENT
  Age: 66 Year
  Sex: Male

DRUGS (1)
  1. STIVARGA [Suspect]
     Indication: RECTAL CANCER METASTATIC
     Dosage: 80 MG, BID
     Route: 048
     Dates: start: 201307, end: 201308

REACTIONS (3)
  - Deafness [Not Recovered/Not Resolved]
  - Mucosal inflammation [Recovering/Resolving]
  - Rectal cancer metastatic [Fatal]
